FAERS Safety Report 8983799 (Version 1)
Quarter: 2012Q4

REPORT INFORMATION
  Report Type: 
  Country: US (occurrence: US)
  Receive Date: 20121224
  Receipt Date: 20121224
  Transmission Date: 20130627
  Serious: Yes (Other)
  Sender: FDA-Public Use
  Company Number: US-ROCHE-1169125

PATIENT
  Age: 51 Year
  Sex: Female
  Weight: 54.48 kg

DRUGS (4)
  1. HERCEPTIN [Suspect]
     Indication: BREAST CANCER METASTATIC
     Route: 065
  2. XELODA [Suspect]
     Indication: BREAST CANCER METASTATIC
     Route: 065
  3. PERJETA [Suspect]
     Indication: BREAST CANCER METASTATIC
     Route: 065
  4. TAXOTERE [Concomitant]
     Indication: BREAST CANCER METASTATIC
     Route: 065

REACTIONS (5)
  - Hepatic failure [Unknown]
  - Disease progression [Unknown]
  - Jaundice [Unknown]
  - Liver function test abnormal [Recovered/Resolved]
  - Weight decreased [Unknown]
